FAERS Safety Report 9528355 (Version 1)
Quarter: 2013Q1

REPORT INFORMATION
  Report Type: Spontaneous
  Country: US (occurrence: None)
  Receive Date: 20130314
  Receipt Date: 20130314
  Transmission Date: 20140127
  Serious: No
  Sender: FDA-Public Use
  Company Number: 1208USA000087

PATIENT
  Age: 60 Year
  Sex: Female
  Weight: 63.5 kg

DRUGS (6)
  1. VICTRELIS [Suspect]
     Indication: HEPATITIS C
  2. REBETOL [Suspect]
     Indication: HEPATITIS C
  3. CYMBALTA (DULOXETINE HYDROCHLORIDE) [Concomitant]
  4. LEVOTHYROXINE SODIUM (LEVOTHYROXINE SODIUM) [Concomitant]
  5. METOPROLOL (METOPROLOL) [Concomitant]
  6. RESTORIL (CHLORMEZANONE) (CHLORMEZANONE) [Concomitant]

REACTIONS (3)
  - Anger [None]
  - Nausea [None]
  - Abdominal discomfort [None]
